FAERS Safety Report 12509209 (Version 2)
Quarter: 2016Q3

REPORT INFORMATION
  Report Type: Spontaneous
  Country: JP (occurrence: JP)
  Receive Date: 20160629
  Receipt Date: 20160719
  Transmission Date: 20161109
  Serious: Yes (Hospitalization)
  Sender: FDA-Public Use
  Company Number: JP-SA-2016SA118586

PATIENT
  Age: 70 Year
  Sex: Male

DRUGS (2)
  1. PLAVIX [Suspect]
     Active Substance: CLOPIDOGREL BISULFATE
     Indication: ANTIPLATELET THERAPY
     Route: 048
  2. WARFARIN SODIUM. [Suspect]
     Active Substance: WARFARIN SODIUM
     Indication: ANTICOAGULANT THERAPY
     Route: 048

REACTIONS (6)
  - Abdominal pain upper [Unknown]
  - Cholangitis acute [Unknown]
  - Haemorrhage [Unknown]
  - Inflammation [Unknown]
  - Haemobilia [Unknown]
  - Hepatic enzyme increased [Unknown]
